FAERS Safety Report 7439118-8 (Version None)
Quarter: 2011Q2

REPORT INFORMATION
  Report Type: 
  Country: None (occurrence: None)
  Receive Date: 20110427
  Receipt Date: 20101210
  Transmission Date: 20111010
  Serious: Yes (Hospitalization, Other)
  Sender: FDA-Public Use
  Company Number: US-BAYER-201017141NA

PATIENT
  Age: 30 Year
  Sex: Female
  Weight: 68.182 kg

DRUGS (3)
  1. YASMIN [Suspect]
     Dosage: YASMIN WAS REFILLED: 2005, 12-SEP-2005, OCT-2005, 24-DEC-2005 AND 06-JANYASMIN WAS REFILLED: 2005, 1
     Route: 048
     Dates: start: 20050801, end: 20091201
  2. YAZ [Suspect]
     Indication: CONTRACEPTION
     Dosage: -
     Route: 048
     Dates: start: 20050801, end: 20100101
  3. YAZ [Suspect]
     Indication: MENORRHAGIA

REACTIONS (4)
  - MENTAL DISORDER [None]
  - CHOLELITHIASIS [None]
  - ABDOMINAL PAIN UPPER [None]
  - CHOLECYSTITIS CHRONIC [None]
